FAERS Safety Report 6969657-5 (Version None)
Quarter: 2010Q3

REPORT INFORMATION
  Report Type: 
  Country: None (occurrence: None)
  Receive Date: 20100908
  Receipt Date: 20100830
  Transmission Date: 20110219
  Serious: Yes (Hospitalization)
  Sender: FDA-Public Use
  Company Number: US-US-EMD SERONO, INC.-7005524

PATIENT
  Sex: Male
  Weight: 77 kg

DRUGS (5)
  1. REBIF [Suspect]
     Indication: MULTIPLE SCLEROSIS
     Route: 058
     Dates: start: 20080228
  2. NEURONTIN [Concomitant]
     Indication: MULTIPLE SCLEROSIS
  3. OXYCONTIN [Concomitant]
     Indication: SURGERY
  4. OXYCONTIN [Concomitant]
     Indication: BACK PAIN
  5. CRESTOR [Concomitant]
     Indication: BLOOD CHOLESTEROL INCREASED

REACTIONS (11)
  - ADRENAL INSUFFICIENCY [None]
  - ANAEMIA [None]
  - BLOOD PRESSURE FLUCTUATION [None]
  - COLOSTOMY [None]
  - DECUBITUS ULCER [None]
  - DIABETES MELLITUS [None]
  - MULTIPLE SCLEROSIS [None]
  - RENAL FAILURE ACUTE [None]
  - SEPTIC SHOCK [None]
  - URINARY RETENTION [None]
  - URINARY TRACT INFECTION [None]
